FAERS Safety Report 4968021-8 (Version None)
Quarter: 2006Q2

REPORT INFORMATION
  Report Type: 
  Country: None (occurrence: None)
  Receive Date: 20060404
  Receipt Date: 20060323
  Transmission Date: 20061013
  Serious: Yes (Hospitalization)
  Sender: FDA-Public Use
  Company Number: 223359

PATIENT
  Age: 55 Year
  Sex: Male
  Weight: 72 kg

DRUGS (17)
  1. AVASTIN [Suspect]
     Indication: COLORECTAL CANCER METASTATIC
     Dosage: 581 MG, QOW, INTRAVENOUS
     Route: 042
     Dates: start: 20060308, end: 20060308
  2. ERBITUX [Suspect]
     Indication: COLORECTAL CANCER METASTATIC
     Dosage: 600 MG, 1/WEEK, INTRAVENOUS; 968 MG, INTRAVENOUS
     Route: 042
     Dates: start: 20060308, end: 20060315
  3. MAGIC MOUTH WASH (INGREDIENTS UNK)(MOUTHWASH NOS) [Concomitant]
  4. FLUOROURACIL [Suspect]
     Indication: COLORECTAL CANCER METASTATIC
     Dosage: SEE IMAGE
     Route: 042
     Dates: start: 20060308, end: 20060308
  5. LEUCOVORIN CALCIUM [Suspect]
     Indication: COLORECTAL CANCER METASTATIC
     Dosage: 968 MG, QOW, INTRAVENOUS
     Route: 042
     Dates: start: 20060308, end: 20060308
  6. DIFLUCAN [Concomitant]
  7. MAGNESIUM CITRATE (MAGNESIUM CITRATE) [Concomitant]
  8. ACYCLOVIR [Concomitant]
  9. HEMOCYTE (FERROUS FUMARATE) [Concomitant]
  10. LORTAB [Concomitant]
  11. MORPHINE SULFATE [Concomitant]
  12. ZIAC [Concomitant]
  13. CLINDAMYCIN [Concomitant]
  14. TRIAMCINOLONE [Concomitant]
  15. PHENERGAN (PROMETHAZINE HYDROCHLORIDE) [Concomitant]
  16. GLUCOTROL XL [Concomitant]
  17. FLUOROURACIL [Suspect]
     Dosage: 968 MG, QOW, IV BOLUS
     Route: 040
     Dates: start: 20060308, end: 20060308

REACTIONS (3)
  - CATHETER RELATED INFECTION [None]
  - DYSPNOEA [None]
  - PYREXIA [None]
